FAERS Safety Report 6802792-0 (Version None)
Quarter: 2010Q2

REPORT INFORMATION
  Report Type: 
  Country: None (occurrence: None)
  Receive Date: 20100628
  Receipt Date: 20100616
  Transmission Date: 20101027
  Serious: Yes (Other)
  Sender: FDA-Public Use
  Company Number: PHHY2009CA47466

PATIENT
  Sex: Male

DRUGS (12)
  1. EXJADE [Suspect]
     Indication: MYELODYSPLASTIC SYNDROME
     Dosage: 1500 MG, UNK
     Route: 048
     Dates: start: 20080101, end: 20100208
  2. EXJADE [Suspect]
     Dosage: 1500 MG, UNK
     Route: 048
  3. EXJADE [Suspect]
     Dosage: 1000 MG, QD
     Route: 048
     Dates: start: 20100303
  4. ALTACE [Concomitant]
     Dosage: 10 MG, QD
     Route: 048
  5. NORVASC [Concomitant]
     Dosage: 5 MG, QD
     Route: 048
  6. CRESTOR [Concomitant]
     Dosage: 20 MG, QD
     Route: 048
  7. NEXIUM [Concomitant]
     Dosage: 40 MG, QD
     Route: 048
  8. DOMPERIDONE [Concomitant]
     Dosage: 10 MG 4 TIMES A DAY
     Route: 048
  9. ASPIRIN [Concomitant]
     Dosage: 81 MG, QD
     Route: 048
  10. PENLAC [Concomitant]
  11. OXAZEPAM [Concomitant]
     Dosage: 15 MG, UNK
     Route: 048
  12. ATIVAN [Concomitant]
     Dosage: 2 DF, UNK
     Route: 060

REACTIONS (4)
  - ABDOMINAL DISCOMFORT [None]
  - ARTERIAL DISORDER [None]
  - PHARYNGITIS [None]
  - RASH GENERALISED [None]
